FAERS Safety Report 12477957 (Version 1)
Quarter: 2016Q2

REPORT INFORMATION
  Report Type: Report from Study
  Country: US (occurrence: US)
  Receive Date: 20160617
  Receipt Date: 20160617
  Transmission Date: 20160815
  Serious: No
  Sender: FDA-Public Use
  Company Number: PHEH2016US014801

PATIENT
  Sex: Male

DRUGS (1)
  1. EXTAVIA [Suspect]
     Active Substance: INTERFERON BETA-1B
     Indication: MULTIPLE SCLEROSIS
     Dosage: 0.25 MG,(1 ML), QOD
     Route: 058

REACTIONS (10)
  - Incoherent [Unknown]
  - Limb discomfort [Unknown]
  - Muscle spasms [Unknown]
  - Asthenia [Unknown]
  - Depression [Unknown]
  - Insomnia [Unknown]
  - Dizziness [Unknown]
  - Pain in extremity [Unknown]
  - Feeling drunk [Unknown]
  - Chills [Unknown]
